FAERS Safety Report 5680908-X (Version None)
Quarter: 2008Q1

REPORT INFORMATION
  Report Type: 
  Country: None (occurrence: None)
  Receive Date: 20080326
  Receipt Date: 20080319
  Transmission Date: 20080703
  Serious: Yes (Other)
  Sender: FDA-Public Use
  Company Number: US-PFIZER INC-2007104277

PATIENT
  Sex: Male

DRUGS (3)
  1. BEXTRA [Suspect]
     Indication: PAIN IN EXTREMITY
  2. CELEBREX [Suspect]
  3. VIOXX [Suspect]

REACTIONS (1)
  - STEVENS-JOHNSON SYNDROME [None]
